FAERS Safety Report 5677029-9 (Version None)
Quarter: 2008Q1

REPORT INFORMATION
  Report Type: 
  Country: None (occurrence: None)
  Receive Date: 20080324
  Receipt Date: 20080321
  Transmission Date: 20080703
  Serious: Yes (Life-Threatening, Hospitalization)
  Sender: FDA-Public Use
  Company Number: CN-BRISTOL-MYERS SQUIBB COMPANY-14013049

PATIENT
  Age: 57 Year
  Sex: Male
  Weight: 70 kg

DRUGS (6)
  1. CARBOPLATIN [Suspect]
     Indication: SMALL CELL LUNG CANCER STAGE UNSPECIFIED
     Dosage: DAILY DOSE- AUC DAY 1 OF 21 DAY CYCLE.
     Route: 042
     Dates: start: 20071022
  2. PEMETREXED DISODIUM [Suspect]
     Indication: SMALL CELL LUNG CANCER STAGE UNSPECIFIED
     Route: 042
     Dates: start: 20071022
  3. FOLIC ACID [Concomitant]
  4. VITAMIN B-12 [Concomitant]
  5. DEXAMETHASONE TAB [Concomitant]
  6. PAMIDRONATE DISODIUM [Concomitant]
     Indication: METASTASES TO BONE

REACTIONS (11)
  - ANAEMIA [None]
  - DECUBITUS ULCER [None]
  - DIARRHOEA [None]
  - DIPLEGIA [None]
  - DISEASE PROGRESSION [None]
  - HYPOKALAEMIA [None]
  - HYPOPROTEINAEMIA [None]
  - INFECTION [None]
  - MICTURITION DISORDER [None]
  - PROCTITIS [None]
  - SPINAL COMPRESSION FRACTURE [None]
